FAERS Safety Report 18351650 (Version 3)
Quarter: 2020Q4

REPORT INFORMATION
  Report Type: Report from Study
  Country: US (occurrence: US)
  Receive Date: 20201006
  Receipt Date: 20201215
  Transmission Date: 20210114
  Serious: Yes (Hospitalization)
  Sender: FDA-Public Use
  Company Number: US-OTSUKA-2020_023939

PATIENT
  Age: 61 Year
  Sex: Female

DRUGS (1)
  1. ASTX727 [Suspect]
     Active Substance: CEDAZURIDINE\DECITABINE
     Indication: PRODUCT USED FOR UNKNOWN INDICATION
     Dosage: 135 MG (35 MG DECITABINE AND 100 MG CEDAZURIDINE), QD (IN MORNING WITH WATER)
     Route: 065
     Dates: start: 20200918

REACTIONS (3)
  - Constipation [Not Recovered/Not Resolved]
  - Therapy cessation [Unknown]
  - Hypertension [Unknown]

NARRATIVE: CASE EVENT DATE: 20201103
